FAERS Safety Report 8049206-3 (Version None)
Quarter: 2012Q1

REPORT INFORMATION
  Report Type: 
  Country: None (occurrence: None)
  Receive Date: 20120117
  Receipt Date: 20120109
  Transmission Date: 20120608
  Serious: Yes (Other)
  Sender: FDA-Public Use
  Company Number: US-JNJFOC-20100503940

PATIENT
  Age: 2 Year
  Sex: Male

DRUGS (4)
  1. CONCENTRATED TYLENOL INFANT DROPS [Suspect]
     Indication: PYREXIA
     Route: 048
     Dates: start: 20100413
  2. CONCENTRATED MOTRIN INFANTS DROPS [Suspect]
     Route: 048
  3. CONCENTRATED TYLENOL INFANT DROPS [Suspect]
     Route: 048
  4. CONCENTRATED MOTRIN INFANTS DROPS [Suspect]
     Indication: PYREXIA
     Route: 048
     Dates: start: 20100413

REACTIONS (6)
  - PYREXIA [None]
  - THIRST [None]
  - DRUG INEFFECTIVE [None]
  - ANAPHYLACTIC REACTION [None]
  - SALIVARY HYPERSECRETION [None]
  - PRODUCT QUALITY ISSUE [None]
